FAERS Safety Report 11069140 (Version 1)
Quarter: 2015Q2

REPORT INFORMATION
  Report Type: Spontaneous
  Country: FR (occurrence: FR)
  Receive Date: 20150427
  Receipt Date: 20150427
  Transmission Date: 20150821
  Serious: Yes (Hospitalization)
  Sender: FDA-Public Use
  Company Number: PHHY2015FR048919

PATIENT
  Age: 65 Year
  Sex: Female

DRUGS (3)
  1. DOXORUBIN [Concomitant]
     Active Substance: DOXORUBICIN
     Indication: METASTASES TO BONE
     Route: 042
     Dates: start: 201302
  2. ZOMETA [Suspect]
     Active Substance: ZOLEDRONIC ACID
     Indication: METASTASES TO BONE
     Dosage: UNK
     Route: 042
     Dates: start: 200907, end: 201012
  3. CLASTOBAN [Suspect]
     Active Substance: CLODRONIC ACID
     Indication: METASTASES TO BONE
     Route: 042
     Dates: start: 201109, end: 201206

REACTIONS (1)
  - Osteonecrosis of jaw [Unknown]

NARRATIVE: CASE EVENT DATE: 201302
